FAERS Safety Report 6117527-7 (Version None)
Quarter: 2009Q1

REPORT INFORMATION
  Report Type: 
  Country: None (occurrence: None)
  Receive Date: 20090314
  Receipt Date: 20090120
  Transmission Date: 20090719
  Serious: No
  Sender: FDA-Public Use
  Company Number: US-ABBOTT-09P-163-0499281-00

PATIENT
  Sex: Female
  Weight: 60.382 kg

DRUGS (1)
  1. HUMIRA [Suspect]
     Indication: CROHN'S DISEASE
     Route: 058
     Dates: start: 20080305

REACTIONS (7)
  - CONSTIPATION [None]
  - EAR PAIN [None]
  - NAUSEA [None]
  - ODYNOPHAGIA [None]
  - ORAL CANDIDIASIS [None]
  - PROCEDURAL PAIN [None]
  - TOOTH IMPACTED [None]
